FAERS Safety Report 6529133-0 (Version None)
Quarter: 2010Q1

REPORT INFORMATION
  Report Type: 
  Country: None (occurrence: None)
  Receive Date: 20100107
  Receipt Date: 20091230
  Transmission Date: 20100710
  Serious: Yes (Other)
  Sender: FDA-Public Use
  Company Number: US-RB-000142-10

PATIENT
  Age: 77 Year
  Sex: Female

DRUGS (2)
  1. MUCINEX DM [Suspect]
     Indication: NASOPHARYNGITIS
     Route: 048
     Dates: start: 20091222
  2. MUCINEX DM [Suspect]
     Indication: OROPHARYNGEAL PAIN
     Route: 048
     Dates: start: 20091222

REACTIONS (2)
  - BLOOD PRESSURE INCREASED [None]
  - TONGUE DISORDER [None]
